APPROVED DRUG PRODUCT: VENLAFAXINE HYDROCHLORIDE
Active Ingredient: VENLAFAXINE HYDROCHLORIDE
Strength: EQ 25MG BASE
Dosage Form/Route: TABLET;ORAL
Application: A202036 | Product #001 | TE Code: AB
Applicant: YAOPHARMA CO LTD
Approved: May 28, 2015 | RLD: No | RS: No | Type: RX